FAERS Safety Report 4980166-5 (Version None)
Quarter: 2006Q2

REPORT INFORMATION
  Report Type: 
  Country: None (occurrence: None)
  Receive Date: 20060424
  Receipt Date: 20060413
  Transmission Date: 20061013
  Serious: Yes (Hospitalization)
  Sender: FDA-Public Use
  Company Number: US-JNJFOC-20060403277

PATIENT
  Sex: Female
  Weight: 92.53 kg

DRUGS (10)
  1. REMICADE [Suspect]
     Indication: RHEUMATOID ARTHRITIS
     Route: 042
  2. ALEVE [Concomitant]
  3. METHOTREXATE [Concomitant]
  4. SYNTHROID [Concomitant]
  5. PROTONIX [Concomitant]
  6. ATENOLOL [Concomitant]
  7. NORVASC [Concomitant]
  8. TORSEMIDE [Concomitant]
  9. FOLIC ACID [Concomitant]
  10. LIPITOR [Concomitant]

REACTIONS (2)
  - CORONARY ARTERY DISEASE [None]
  - PULMONARY HYPERTENSION [None]
